FAERS Safety Report 4701050-8 (Version None)
Quarter: 2005Q2

REPORT INFORMATION
  Report Type: 
  Country: None (occurrence: None)
  Receive Date: 20050628
  Receipt Date: 20050617
  Transmission Date: 20051028
  Serious: Yes (Life-Threatening, Hospitalization)
  Sender: FDA-Public Use
  Company Number: BR-JNJFOC-20050605129

PATIENT
  Age: 43 Year
  Sex: Female
  Weight: 90 kg

DRUGS (3)
  1. REMICADE [Suspect]
     Route: 042
  2. REMICADE [Suspect]
     Route: 042
  3. REMICADE [Suspect]
     Indication: ARTHRITIS
     Route: 042

REACTIONS (2)
  - AUTOIMMUNE DISORDER [None]
  - MYELITIS [None]
